FAERS Safety Report 18073600 (Version 1)
Quarter: 2020Q3

REPORT INFORMATION
  Report Type: Spontaneous
  Country: US (occurrence: US)
  Receive Date: 20200727
  Receipt Date: 20200727
  Transmission Date: 20201103
  Serious: Yes (Hospitalization, Other)
  Sender: FDA-Public Use
  Company Number: US-GLENMARK PHARMACEUTICALS-2020GMK048823

PATIENT

DRUGS (3)
  1. GABAPENTIN TABLETS USP, 800 MG [Suspect]
     Active Substance: GABAPENTIN
     Indication: NEUROPATHY PERIPHERAL
     Dosage: 800 MILLIGRAM, TID (DURATION: SINCE 10 YEARS)
     Route: 048
     Dates: start: 2010
  2. CARBAMAZEPINE. [Concomitant]
     Active Substance: CARBAMAZEPINE
     Indication: NEUROPATHY PERIPHERAL
     Dosage: 100 MILLIGRAM, BID
     Route: 048
     Dates: start: 2010, end: 202005
  3. CARBAMAZEPINE. [Concomitant]
     Active Substance: CARBAMAZEPINE
     Dosage: 100 MILLIGRAM, QD
     Route: 048
     Dates: start: 20200520, end: 20200601

REACTIONS (2)
  - Product use in unapproved indication [Unknown]
  - Pneumonia [Recovered/Resolved]

NARRATIVE: CASE EVENT DATE: 202002
